FAERS Safety Report 20607177 (Version 1)
Quarter: 2022Q1

REPORT INFORMATION
  Report Type: Spontaneous
  Country: US (occurrence: None)
  Receive Date: 20220317
  Receipt Date: 20220317
  Transmission Date: 20220423
  Serious: Yes (Other)
  Sender: FDA-Public Use
  Company Number: US-ADIENNEP-2022AD000207

PATIENT
  Age: 33 Year
  Sex: Male

DRUGS (3)
  1. THIOTEPA [Suspect]
     Active Substance: THIOTEPA
     Indication: Autologous haematopoietic stem cell transplant
  2. BICNU [Suspect]
     Active Substance: CARMUSTINE
     Indication: Autologous haematopoietic stem cell transplant
  3. ETOPOSIDE [Suspect]
     Active Substance: ETOPOSIDE
     Indication: Autologous haematopoietic stem cell transplant

REACTIONS (5)
  - Febrile neutropenia [Unknown]
  - Appendicitis [Recovered/Resolved]
  - Terminal ileitis [Recovered/Resolved]
  - Clostridium difficile colitis [Recovered/Resolved]
  - Pancytopenia [Unknown]
